FAERS Safety Report 9458148 (Version 1)
Quarter: 2013Q3

REPORT INFORMATION
  Report Type: Spontaneous
  Country: DE (occurrence: None)
  Receive Date: 20130812
  Receipt Date: 20130812
  Transmission Date: 20140515
  Serious: Yes (Hospitalization)
  Sender: FDA-Public Use
  Company Number: 1835206

PATIENT
  Sex: 0

DRUGS (3)
  1. CARBOPLATIN [Suspect]
     Indication: NON-SMALL CELL LUNG CANCER STAGE IV
     Dosage: AUC 6
  2. PACLITAXEL [Suspect]
     Indication: NON-SMALL CELL LUNG CANCER STAGE IV
  3. OTHER THERAPEUTIC RADIOPHARMACEUTICALS [Concomitant]

REACTIONS (9)
  - Phlebitis [None]
  - Fatigue [None]
  - Neutropenia [None]
  - Leukopenia [None]
  - Thrombosis [None]
  - Embolism [None]
  - Dyspnoea [None]
  - Oedema [None]
  - Neurotoxicity [None]
